FAERS Safety Report 7658498 (Version 3)
Quarter: 2013Q1

REPORT INFORMATION
  Report Type: Report from Study
  Country: DE (occurrence: DE)
  Receive Date: 20101105
  Receipt Date: 20130201
  Transmission Date: 20140127
  Serious: Yes (Hospitalization, Other)
  Sender: FDA-Public Use
  Company Number: PHHO2010DE16330

PATIENT
  Age: 45 Year
  Sex: Female
  Weight: 96 kg

DRUGS (7)
  1. AFINITOR [Suspect]
     Indication: BREAST CANCER
     Dosage: 5 MG, QD
     Route: 048
     Dates: start: 20100917, end: 20101022
  2. PACLITAXEL [Concomitant]
     Indication: BREAST CANCER
     Dosage: 159 MG, UNK
     Route: 042
     Dates: start: 20100927, end: 20101011
  3. BEVACIZUMAB [Concomitant]
     Indication: BREAST CANCER
     Dosage: 1455 MG, UNK
     Route: 042
     Dates: start: 20100621, end: 20100823
  4. EPIRUBICIN [Concomitant]
  5. CYCLOPHOSPHAMIDE [Concomitant]
     Indication: BREAST CANCER
     Dosage: 1194 MG, UNK
     Route: 042
     Dates: start: 20100621
  6. APROVEL [Concomitant]
  7. METFORMIN [Concomitant]

REACTIONS (2)
  - Vertigo [Recovered/Resolved]
  - Blood glucose increased [Unknown]
